FAERS Safety Report 18446575 (Version 1)
Quarter: 2020Q4

REPORT INFORMATION
  Report Type: Spontaneous
  Country: US (occurrence: US)
  Receive Date: 20201030
  Receipt Date: 20201030
  Transmission Date: 20210114
  Serious: Yes (Hospitalization)
  Sender: FDA-Public Use
  Company Number: None

PATIENT
  Age: 69 Year
  Sex: Female
  Weight: 77.6 kg

DRUGS (1)
  1. OLANZAPINE (754829) [Suspect]
     Active Substance: OLANZAPINE
     Indication: PRODUCT USED FOR UNKNOWN INDICATION
     Dates: end: 20201009

REACTIONS (3)
  - Pulmonary embolism [None]
  - Pulmonary oedema [None]
  - Atelectasis [None]

NARRATIVE: CASE EVENT DATE: 20201022
